FAERS Safety Report 13762060 (Version 2)
Quarter: 2017Q4

REPORT INFORMATION
  Report Type: Report from Study
  Country: CA (occurrence: CA)
  Receive Date: 20170718
  Receipt Date: 20171121
  Transmission Date: 20180320
  Serious: Yes (Other)
  Sender: FDA-Public Use
  Company Number: CA-CONCORDIA PHARMACEUTICALS INC.-GSH201707-004070

PATIENT
  Age: 69 Year
  Sex: Female

DRUGS (3)
  1. CIMZIA [Suspect]
     Active Substance: CERTOLIZUMAB PEGOL
  2. CIMZIA [Suspect]
     Active Substance: CERTOLIZUMAB PEGOL
     Indication: RHEUMATOID ARTHRITIS
     Route: 058
     Dates: start: 20110407
  3. PLAQUENIL [Suspect]
     Active Substance: HYDROXYCHLOROQUINE SULFATE
     Indication: PRODUCT USED FOR UNKNOWN INDICATION
     Route: 048
     Dates: start: 201202

REACTIONS (2)
  - Cataract [Unknown]
  - Rash generalised [Unknown]

NARRATIVE: CASE EVENT DATE: 2012
